FAERS Safety Report 13305206 (Version 1)
Quarter: 2017Q1

REPORT INFORMATION
  Report Type: Spontaneous
  Country: GB (occurrence: GB)
  Receive Date: 20170308
  Receipt Date: 20170308
  Transmission Date: 20170428
  Serious: Yes (Other)
  Sender: FDA-Public Use
  Company Number: GB-AUROBINDO-AUR-APL-2017-30288

PATIENT
  Age: 46 Year
  Sex: Male
  Weight: 138 kg

DRUGS (2)
  1. LISINOPRIL. [Suspect]
     Active Substance: LISINOPRIL
     Dosage: 20 MG, ONCE A DAY
     Route: 048
     Dates: start: 201401, end: 20150713
  2. LISINOPRIL. [Suspect]
     Active Substance: LISINOPRIL
     Indication: HYPERTENSION
     Dosage: UNK
     Route: 048
     Dates: start: 20131113, end: 201401

REACTIONS (5)
  - Angioedema [Recovered/Resolved]
  - Eye swelling [Unknown]
  - Throat tightness [Unknown]
  - Dyspnoea [Unknown]
  - Sleep apnoea syndrome [Unknown]

NARRATIVE: CASE EVENT DATE: 201502
